FAERS Safety Report 25189485 (Version 2)
Quarter: 2025Q3

REPORT INFORMATION
  Report Type: Spontaneous
  Country: US (occurrence: US)
  Receive Date: 20250411
  Receipt Date: 20250916
  Transmission Date: 20251021
  Serious: No
  Sender: INVENTIA HEALTHCARE LTD
  Company Number: None

PATIENT
  Sex: Male

DRUGS (1)
  1. TELMISARTAN [Suspect]
     Active Substance: TELMISARTAN
     Indication: Product used for unknown indication
     Route: 065

REACTIONS (3)
  - Product with quality issue administered [Unknown]
  - Product physical issue [Unknown]
  - No adverse event [Unknown]
